FAERS Safety Report 10658278 (Version 1)
Quarter: 2014Q4

REPORT INFORMATION
  Report Type: Spontaneous
  Country: US (occurrence: US)
  Receive Date: 20141217
  Receipt Date: 20141217
  Transmission Date: 20150529
  Serious: No
  Sender: FDA-Public Use
  Company Number: US-GLAXOSMITHKLINE-A1064961A

PATIENT

DRUGS (14)
  1. NOVOLOG SOLUTION FOR INJECTION [Concomitant]
  2. VOTRIENT [Suspect]
     Active Substance: PAZOPANIB HYDROCHLORIDE
     Indication: PRODUCT USED FOR UNKNOWN INDICATION
     Dosage: 200MG, 800MG DAILY DOSING
     Route: 048
  3. BENAZEPRIL TABLET [Concomitant]
  4. LEVEMIR SOLUTION FOR INJECTION [Concomitant]
  5. VITAMIN D CAPSULE [Concomitant]
  6. ATORVASTATIN TABLET [Concomitant]
     Active Substance: ATORVASTATIN
  7. POTASSIUM TABLET [Concomitant]
  8. MULTIVITAMIN TABLET [Concomitant]
  9. ATENOLOL TABLET [Concomitant]
  10. LEVOTHYROXINE TABLET [Concomitant]
  11. PANTOPRAZOLE TABLET [Concomitant]
  12. IRON TABLET [Concomitant]
     Active Substance: IRON
  13. DILTIAZEM CAPSULE [Concomitant]
  14. XARELTO TABLET [Concomitant]

REACTIONS (3)
  - Dysgeusia [Unknown]
  - Headache [Unknown]
  - Decreased appetite [Unknown]

NARRATIVE: CASE EVENT DATE: 20140212
